FAERS Safety Report 6314197-X (Version None)
Quarter: 2009Q3

REPORT INFORMATION
  Report Type: 
  Country: None (occurrence: None)
  Receive Date: 20090817
  Receipt Date: 20090803
  Transmission Date: 20100115
  Serious: Yes (Hospitalization)
  Sender: FDA-Public Use
  Company Number: 2008AL010869

PATIENT
  Age: 38 Year
  Sex: Male

DRUGS (9)
  1. DIGOXIN [Suspect]
     Dosage: 0.125MG, DAILY, PO
     Route: 048
  2. THIAMIDE HYDROCHLORIDE [Concomitant]
  3. PHENOBARBITAL [Concomitant]
  4. DILANTIN [Concomitant]
  5. METOCLOPRAMIDE [Concomitant]
  6. TRIAZOLAM [Concomitant]
  7. FOLIC ACID [Concomitant]
  8. LOVENOX [Concomitant]
  9. ASPIRIN [Concomitant]

REACTIONS (11)
  - ANXIETY [None]
  - ATAXIA [None]
  - CONVULSION [None]
  - ECONOMIC PROBLEM [None]
  - FALL [None]
  - HIP ARTHROPLASTY [None]
  - MULTIPLE INJURIES [None]
  - PAIN [None]
  - SUBDURAL HAEMATOMA [None]
  - TRAUMATIC BRAIN INJURY [None]
  - URINARY RETENTION [None]
